FAERS Safety Report 12419071 (Version 1)
Quarter: 2016Q2

REPORT INFORMATION
  Report Type: Spontaneous
  Country: US (occurrence: None)
  Receive Date: 20160527
  Receipt Date: 20160527
  Transmission Date: 20160815
  Serious: Yes (Life-Threatening, Hospitalization, Disabling)
  Sender: FDA-Public Use
  Company Number: None

PATIENT
  Age: 60 Year
  Sex: Female
  Weight: 75.75 kg

DRUGS (11)
  1. DECADRON [Concomitant]
     Active Substance: DEXAMETHASONE
  2. MIRALEX [Concomitant]
  3. OXALIPLATIN. [Concomitant]
     Active Substance: OXALIPLATIN
  4. HEMATINIC WITH FOLIC ACID [Concomitant]
  5. FU 5 [Concomitant]
  6. CALCIUM [Concomitant]
     Active Substance: CALCIUM
  7. VICODIN [Concomitant]
     Active Substance: ACETAMINOPHEN\HYDROCODONE BITARTRATE
  8. LEUCOVORIN. [Concomitant]
     Active Substance: LEUCOVORIN
  9. PROTONIX [Concomitant]
     Active Substance: PANTOPRAZOLE SODIUM
  10. ENBREL [Suspect]
     Active Substance: ETANERCEPT
     Indication: RHEUMATOID ARTHRITIS
     Dosage: 1 INJECTION(S) WEEKLY, GIVEN INTO/UNDER THE SKIN
     Dates: start: 20080831, end: 20160122
  11. PREDNISONE. [Concomitant]
     Active Substance: PREDNISONE

REACTIONS (2)
  - Colon cancer [None]
  - Adenocarcinoma of colon [None]

NARRATIVE: CASE EVENT DATE: 20160119
